FAERS Safety Report 11349471 (Version 1)
Quarter: 2015Q3

REPORT INFORMATION
  Report Type: Spontaneous
  Country: IT (occurrence: IT)
  Receive Date: 20150807
  Receipt Date: 20150807
  Transmission Date: 20151125
  Serious: Yes (Hospitalization)
  Sender: FDA-Public Use
  Company Number: IT-SUN PHARMACEUTICAL INDUSTRIES LTD-2015RR-101380

PATIENT

DRUGS (3)
  1. CODEINE [Suspect]
     Active Substance: CODEINE
     Indication: INFLUENZA LIKE ILLNESS
     Dosage: 90 MG, DAILY
     Route: 048
     Dates: start: 20141204, end: 20141209
  2. PARACETAMOL [Suspect]
     Active Substance: ACETAMINOPHEN
     Indication: INFLUENZA LIKE ILLNESS
     Dosage: 3 G, DAILY
     Route: 048
     Dates: start: 20141204, end: 20141209
  3. VALSARTAN. [Concomitant]
     Active Substance: VALSARTAN
     Indication: PRODUCT USED FOR UNKNOWN INDICATION
     Dosage: 160 MG, UNK
     Route: 048
     Dates: start: 20000101, end: 20141209

REACTIONS (1)
  - Hepatitis acute [Recovered/Resolved]

NARRATIVE: CASE EVENT DATE: 20141207
